FAERS Safety Report 6232192-6 (Version None)
Quarter: 2009Q2

REPORT INFORMATION
  Report Type: 
  Country: None (occurrence: None)
  Receive Date: 20090617
  Receipt Date: 20090605
  Transmission Date: 20091009
  Serious: Yes (Hospitalization)
  Sender: FDA-Public Use
  Company Number: US-ELI_LILLY_AND_COMPANY-US200906001670

PATIENT
  Sex: Female
  Weight: 69.5 kg

DRUGS (19)
  1. GEMCITABINE HCL [Suspect]
     Indication: PANCREATIC CARCINOMA
     Dosage: 1000 MG/KG, OTHER
     Route: 042
     Dates: start: 20080627, end: 20080730
  2. GEMCITABINE HCL [Suspect]
     Dosage: 750 MG/M2, OTHER
     Route: 042
     Dates: start: 20080806, end: 20081104
  3. AG-013736(AXITINIB) [Suspect]
     Indication: PANCREATIC CARCINOMA
     Dosage: 5 MG, 2/D
     Route: 048
     Dates: start: 20080627, end: 20081104
  4. MORPHINE [Concomitant]
     Route: 048
     Dates: start: 20080609
  5. LORAZEPAM [Concomitant]
     Route: 048
     Dates: start: 20080624
  6. OXYCODONE [Concomitant]
     Route: 048
     Dates: start: 20080625
  7. AMBIEN [Concomitant]
     Route: 048
     Dates: start: 20080625
  8. PROCHLORPERAZINE [Concomitant]
     Route: 048
     Dates: start: 20080627
  9. LYRICA [Concomitant]
     Route: 048
     Dates: start: 20080729
  10. CORGARD [Concomitant]
     Route: 048
  11. DETROL LA [Concomitant]
     Route: 048
     Dates: start: 20070101
  12. ZYRTEC [Concomitant]
     Route: 048
  13. BENADRYL [Concomitant]
     Route: 048
  14. MIRALAX [Concomitant]
     Route: 048
  15. SYNTHROID [Concomitant]
     Route: 048
  16. MULTI-VITAMIN [Concomitant]
     Route: 048
  17. VITAMIN E [Concomitant]
     Route: 048
  18. GLUCOSAMINE [Concomitant]
     Route: 048
  19. B COMPLEX /00212701/ [Concomitant]
     Route: 048

REACTIONS (1)
  - IMPAIRED HEALING [None]
